FAERS Safety Report 9557869 (Version 1)
Quarter: 2013Q3

REPORT INFORMATION
  Report Type: Spontaneous
  Country: US (occurrence: US)
  Receive Date: 20130926
  Receipt Date: 20130926
  Transmission Date: 20140515
  Serious: Yes (Hospitalization, Other)
  Sender: FDA-Public Use
  Company Number: US-TAKEDA-2013TUS000584

PATIENT
  Sex: 0

DRUGS (1)
  1. COLCHICINE [Suspect]
     Dosage: 18 MG, QD
     Route: 048

REACTIONS (5)
  - Multi-organ disorder [Recovering/Resolving]
  - Gastroenteritis [Recovering/Resolving]
  - Toxicity to various agents [Recovering/Resolving]
  - Bone marrow failure [Recovering/Resolving]
  - Intentional overdose [Unknown]
